FAERS Safety Report 8159030-9 (Version None)
Quarter: 2012Q1

REPORT INFORMATION
  Report Type: 
  Country: None (occurrence: None)
  Receive Date: 20120217
  Receipt Date: 20120203
  Transmission Date: 20120608
  Serious: Yes (Other)
  Sender: FDA-Public Use
  Company Number: 2012AT000063

PATIENT
  Age: 85 Year
  Sex: Female

DRUGS (1)
  1. ISOSORBIDE DINITRATE [Suspect]
     Indication: PRODUCT USED FOR UNKNOWN INDICATION

REACTIONS (4)
  - DEAFNESS [None]
  - BLOOD POTASSIUM DECREASED [None]
  - VISUAL ACUITY REDUCED [None]
  - COGNITIVE DISORDER [None]
